FAERS Safety Report 5043485-2 (Version None)
Quarter: 2006Q2

REPORT INFORMATION
  Report Type: 
  Country: None (occurrence: None)
  Receive Date: 20060601
  Receipt Date: 20060116
  Transmission Date: 20061013
  Serious: No
  Sender: FDA-Public Use
  Company Number: 2006PV007139

PATIENT
  Age: 63 Year
  Sex: Female

DRUGS (2)
  1. BYETTA [Suspect]
     Indication: DIABETES MELLITUS NON-INSULIN-DEPENDENT
     Dosage: 5 MCG; BID; SC
     Route: 058
     Dates: start: 20060101
  2. ACTOS ^LILLY^ [Concomitant]

REACTIONS (4)
  - COLD SWEAT [None]
  - FEELING ABNORMAL [None]
  - NAUSEA [None]
  - WEIGHT INCREASED [None]
